FAERS Safety Report 6409324-X (Version None)
Quarter: 2009Q4

REPORT INFORMATION
  Report Type: 
  Country: None (occurrence: None)
  Receive Date: 20091019
  Receipt Date: 20091019
  Transmission Date: 20100525
  Serious: Yes (Life-Threatening)
  Sender: FDA-Public Use
  Company Number: None

PATIENT
  Age: 62 Year
  Sex: Female

DRUGS (3)
  1. ATROVENT [Suspect]
     Indication: ASTHMA
     Dates: start: 20051122, end: 20051227
  2. ATROVENT [Suspect]
     Indication: CHRONIC OBSTRUCTIVE PULMONARY DISEASE
     Dates: start: 20051122, end: 20051227
  3. ATROVENT [Suspect]
     Indication: EMPHYSEMA
     Dates: start: 20051122, end: 20051227

REACTIONS (3)
  - DIZZINESS [None]
  - DYSPNOEA [None]
  - VISION BLURRED [None]
